FAERS Safety Report 22958112 (Version 3)
Quarter: 2023Q4

REPORT INFORMATION
  Report Type: Spontaneous
  Country: US (occurrence: US)
  Receive Date: 20230919
  Receipt Date: 20231027
  Transmission Date: 20240109
  Serious: Yes (Other)
  Sender: FDA-Public Use
  Company Number: US-SA-SAC20230912000942

PATIENT
  Age: 65 Year
  Sex: Female

DRUGS (1)
  1. DUPIXENT [Suspect]
     Active Substance: DUPILUMAB
     Indication: Neurodermatitis
     Dosage: 300 MG, QOW
     Route: 058
     Dates: start: 202301

REACTIONS (7)
  - Cerebrovascular accident [Unknown]
  - Injury [Unknown]
  - Rash erythematous [Unknown]
  - Rash macular [Unknown]
  - Skin weeping [Unknown]
  - Dry skin [Unknown]
  - Rash [Unknown]

NARRATIVE: CASE EVENT DATE: 20230101
